FAERS Safety Report 6060679-8 (Version None)
Quarter: 2009Q1

REPORT INFORMATION
  Report Type: 
  Country: None (occurrence: None)
  Receive Date: 20090202
  Receipt Date: 20090110
  Transmission Date: 20090719
  Serious: Yes (Death, Other)
  Sender: FDA-Public Use
  Company Number: US-PFIZER INC-2008047738

PATIENT
  Age: 49 Year
  Sex: Male
  Weight: 136.5 kg

DRUGS (5)
  1. VIAGRA [Suspect]
     Indication: ERECTILE DYSFUNCTION
     Route: 048
  2. RAPTIVA [Suspect]
     Indication: PSORIASIS
  3. TRICOR [Concomitant]
     Indication: HYPERTRIGLYCERIDAEMIA
     Dates: start: 20070823
  4. METHOTREXATE [Concomitant]
     Indication: PSORIASIS
  5. METHOTREXATE [Concomitant]
     Indication: SKIN LESION

REACTIONS (7)
  - CHEST PAIN [None]
  - EMPHYSEMA [None]
  - HEPATOMEGALY [None]
  - LEFT VENTRICULAR HYPERTROPHY [None]
  - UNEVALUABLE EVENT [None]
  - VENTRICULAR FIBRILLATION [None]
  - VENTRICULAR TACHYCARDIA [None]
